FAERS Safety Report 4519203-0 (Version None)
Quarter: 2004Q4

REPORT INFORMATION
  Report Type: 
  Country: None (occurrence: None)
  Receive Date: 20041206
  Receipt Date: 20041129
  Transmission Date: 20050328
  Serious: Yes (Death, Life-Threatening)
  Sender: FDA-Public Use
  Company Number: US-MERCK-0411USA04078

PATIENT
  Age: 66 Year
  Sex: Female

DRUGS (12)
  1. ZOLOFT [Concomitant]
     Route: 065
  2. LORAZEPAM [Concomitant]
     Route: 065
  3. PHENYTOIN [Concomitant]
     Route: 065
  4. HYDROCHLOROTHIAZIDE [Concomitant]
     Route: 065
  5. FERROUS SULFATE [Concomitant]
     Route: 065
  6. AMBIEN [Concomitant]
     Route: 065
  7. LORATADINE [Concomitant]
     Route: 065
  8. VIOXX [Suspect]
     Route: 048
  9. VITAMINS (UNSPECIFIED) [Concomitant]
     Route: 065
  10. LOTENSIN [Concomitant]
     Route: 065
  11. TYLENOL W/ CODEINE NO. 3 [Concomitant]
     Route: 065
  12. DORIDEN [Concomitant]
     Route: 065

REACTIONS (1)
  - MYOCARDIAL INFARCTION [None]
